FAERS Safety Report 12874398 (Version 2)
Quarter: 2016Q4

REPORT INFORMATION
  Report Type: Spontaneous
  Country: US (occurrence: US)
  Receive Date: 20161021
  Receipt Date: 20161108
  Transmission Date: 20170207
  Serious: Yes (Hospitalization)
  Sender: FDA-Public Use
  Company Number: US-ACTELION-A-US2016-143880

PATIENT
  Age: 59 Year
  Sex: Male

DRUGS (1)
  1. VELETRI [Suspect]
     Active Substance: EPOPROSTENOL
     Indication: PULMONARY ARTERIAL HYPERTENSION
     Dosage: 12 NG/KG, PER MIN
     Route: 042
     Dates: start: 20160107

REACTIONS (6)
  - Blood potassium decreased [Unknown]
  - Fatigue [Unknown]
  - Fall [Unknown]
  - Dizziness [Unknown]
  - Blood sodium decreased [Unknown]
  - Arthralgia [Unknown]
